FAERS Safety Report 26151038 (Version 1)
Quarter: 2025Q4

REPORT INFORMATION
  Report Type: Spontaneous
  Country: US (occurrence: US)
  Receive Date: 20251212
  Receipt Date: 20251212
  Transmission Date: 20260118
  Serious: No
  Sender: MERCK SHARP & DOHME LLC
  Company Number: US-009507513-2353598

PATIENT
  Age: 81 Year
  Sex: Male

DRUGS (5)
  1. WINREVAIR [Suspect]
     Active Substance: SOTATERCEPT-CSRK
     Indication: Idiopathic pulmonary fibrosis
  2. WINREVAIR [Suspect]
     Active Substance: SOTATERCEPT-CSRK
  3. WINREVAIR [Suspect]
     Active Substance: SOTATERCEPT-CSRK
  4. WINREVAIR [Suspect]
     Active Substance: SOTATERCEPT-CSRK
  5. TREPROSTINIL [Concomitant]
     Active Substance: TREPROSTINIL
     Route: 055

REACTIONS (3)
  - Walking distance test abnormal [Unknown]
  - Off label use [Unknown]
  - Haemoglobin abnormal [Unknown]
